FAERS Safety Report 11920329 (Version 1)
Quarter: 2016Q1

REPORT INFORMATION
  Report Type: Spontaneous
  Country: GB (occurrence: GB)
  Receive Date: 20160115
  Receipt Date: 20160115
  Transmission Date: 20160526
  Serious: Yes (Other)
  Sender: FDA-Public Use
  Company Number: GB-ASTRAZENECA-2016SE01648

PATIENT
  Age: 24 Year
  Sex: Female
  Weight: 62.1 kg

DRUGS (7)
  1. ESOMEPRAZOLE [Concomitant]
     Active Substance: ESOMEPRAZOLE
  2. ROBAXIN [Concomitant]
     Active Substance: METHOCARBAMOL
  3. DICLOFENAC POTASSIUM. [Concomitant]
     Active Substance: DICLOFENAC POTASSIUM
  4. DEXAMETHASONE. [Concomitant]
     Active Substance: DEXAMETHASONE
     Indication: MIGRAINE
     Dosage: 10MG THEN DECREASE 2MG EVERY TWO DAYS.10 DAY COURSE.
     Route: 048
     Dates: start: 20151126, end: 20151205
  5. AMITRIPTYLINE [Concomitant]
     Active Substance: AMITRIPTYLINE
  6. MIRTAZAPINE. [Concomitant]
     Active Substance: MIRTAZAPINE
  7. BUDESONIDE. [Suspect]
     Active Substance: BUDESONIDE
     Indication: INFLAMMATORY BOWEL DISEASE
     Route: 048
     Dates: start: 20151211

REACTIONS (3)
  - Constipation [Unknown]
  - Headache [Unknown]
  - Flatulence [Unknown]
